FAERS Safety Report 7343108-3 (Version None)
Quarter: 2011Q1

REPORT INFORMATION
  Report Type: 
  Country: None (occurrence: None)
  Receive Date: 20110310
  Receipt Date: 20110225
  Transmission Date: 20110831
  Serious: Yes (Hospitalization)
  Sender: FDA-Public Use
  Company Number: US-ELI_LILLY_AND_COMPANY-US201103001553

PATIENT
  Sex: Male
  Weight: 65.76 kg

DRUGS (17)
  1. DEXAMETHASONE [Concomitant]
     Indication: PREMEDICATION
     Dates: start: 20101128, end: 20101130
  2. IBUPROFEN [Concomitant]
     Indication: PAIN
     Dosage: UNK, UNK
     Dates: start: 20101119
  3. HYDROCHLOROTHIAZIDE [Concomitant]
     Indication: HYPERTENSION
     Dosage: UNK, UNK
     Dates: start: 20101005
  4. FOLIC ACID [Concomitant]
     Indication: PREMEDICATION
  5. STOOL SOFTENER [Concomitant]
     Indication: CONSTIPATION
     Dates: start: 20101001
  6. ALBUTEROL SULFATE [Concomitant]
     Indication: CHRONIC OBSTRUCTIVE PULMONARY DISEASE
     Dates: start: 20101005
  7. LORAZEPAM [Concomitant]
     Indication: ANXIETY
     Dates: start: 20101005
  8. CARBOPLATIN [Concomitant]
     Indication: LUNG NEOPLASM MALIGNANT
     Dates: start: 20101109, end: 20101129
  9. IPRATROPIUM BROMIDE [Concomitant]
     Indication: CHRONIC OBSTRUCTIVE PULMONARY DISEASE
     Dates: start: 20101005
  10. ALIMTA [Suspect]
     Indication: NON-SMALL CELL LUNG CANCER
     Dosage: 500 MG/M2, UNK
     Dates: start: 20101109, end: 20101129
  11. ACETAMINOPHEN [Concomitant]
     Indication: ABDOMINAL PAIN
     Dates: start: 20101130
  12. POLYETHYLENE GLYCOL [Concomitant]
     Indication: CONSTIPATION
     Dosage: UNK, UNK
     Dates: start: 20101003
  13. DOXAZOSIN [Concomitant]
     Indication: HYPERTENSION
     Dosage: UNK, UNK
     Dates: start: 20101005
  14. LEVETIRACETAM [Concomitant]
     Indication: CONVULSION
     Dosage: UNK, UNK
     Dates: start: 20101005
  15. OMEPRAZOLE [Concomitant]
     Indication: GASTROINTESTINAL DISORDER
     Dates: start: 20101005
  16. SIMVASTATIN [Concomitant]
     Indication: HYPERLIPIDAEMIA
     Dates: start: 20090912
  17. POTASSIUM [Concomitant]
     Indication: SUPPLEMENTATION THERAPY
     Dates: start: 20101005

REACTIONS (5)
  - INTERVERTEBRAL DISC DISORDER [None]
  - ASTHENIA [None]
  - DEHYDRATION [None]
  - CONSTIPATION [None]
  - HYPOPHAGIA [None]
